FAERS Safety Report 8125292-7 (Version None)
Quarter: 2012Q1

REPORT INFORMATION
  Report Type: 
  Country: None (occurrence: None)
  Receive Date: 20120206
  Receipt Date: 20120126
  Transmission Date: 20120608
  Serious: Yes (Hospitalization)
  Sender: FDA-Public Use
  Company Number: IE-007605

PATIENT
  Age: 35 Year
  Sex: Female

DRUGS (2)
  1. SUPREFACT [Suspect]
     Indication: ASSISTED FERTILISATION
     Dosage: (0.5 ML SUBCUTANEOUS)
     Route: 058
  2. MENOPUR [Suspect]
     Indication: ASSISTED FERTILISATION
     Dosage: (150 IU SUBCUTANEOUS)
     Route: 058

REACTIONS (7)
  - NAUSEA [None]
  - PREGNANCY [None]
  - VOMITING [None]
  - ABDOMINAL PAIN [None]
  - MATERNAL EXPOSURE BEFORE PREGNANCY [None]
  - OVARIAN HYPERSTIMULATION SYNDROME [None]
  - ABDOMINAL DISTENSION [None]
